FAERS Safety Report 4970062-1 (Version None)
Quarter: 2006Q2

REPORT INFORMATION
  Report Type: 
  Country: None (occurrence: None)
  Receive Date: 20060406
  Receipt Date: 20060328
  Transmission Date: 20061013
  Serious: Yes (Death, Life-Threatening, Hospitalization)
  Sender: FDA-Public Use
  Company Number: 200611180BCC

PATIENT
  Sex: Female

DRUGS (3)
  1. ALEVE [Suspect]
     Indication: PAIN
     Dosage: 440 MG, TOTAL DAILY, ORAL
     Route: 048
     Dates: start: 20060307
  2. PERCOCET [Concomitant]
  3. PORTABLE OXYGEN [Concomitant]

REACTIONS (2)
  - ANAPHYLACTIC SHOCK [None]
  - RESPIRATORY ARREST [None]
